FAERS Safety Report 19315814 (Version 5)
Quarter: 2021Q3

REPORT INFORMATION
  Report Type: Spontaneous
  Country: US (occurrence: US)
  Receive Date: 20210527
  Receipt Date: 20210716
  Transmission Date: 20211014
  Serious: Yes (Hospitalization)
  Sender: FDA-Public Use
  Company Number: US-ROCHE-2831537

PATIENT
  Age: 67 Year
  Sex: Male

DRUGS (1)
  1. GAVRETO [Suspect]
     Active Substance: PRALSETINIB
     Indication: LUNG NEOPLASM MALIGNANT
     Dosage: TAKE 2 CAPSULES (200 MG TOTAL) BY MOUTH DAILY ON AN EMPTY STOMACH 1 HOUR BEFORE OR 2 HOURS AFTER FOO
     Route: 048
     Dates: start: 20201111

REACTIONS (5)
  - Pneumonia [Not Recovered/Not Resolved]
  - Respiratory disorder [Recovered/Resolved]
  - Fatigue [Not Recovered/Not Resolved]
  - Dyspnoea [Not Recovered/Not Resolved]
  - Pneumonitis [Not Recovered/Not Resolved]

NARRATIVE: CASE EVENT DATE: 20210511
